FAERS Safety Report 21445712 (Version 1)
Quarter: 2022Q4

REPORT INFORMATION
  Report Type: Spontaneous
  Country: CZ (occurrence: CZ)
  Receive Date: 20221012
  Receipt Date: 20221012
  Transmission Date: 20230113
  Serious: Yes (Congenital Anomaly, Other)
  Sender: FDA-Public Use
  Company Number: CZ-NOVARTISPH-NVSC2022CZ228363

PATIENT
  Sex: Male

DRUGS (1)
  1. CLINDAMYCIN [Suspect]
     Active Substance: CLINDAMYCIN
     Indication: Foetal exposure during pregnancy
     Dosage: MATERNAL DOSE: UNK
     Route: 064

REACTIONS (5)
  - Beta haemolytic streptococcal infection [Unknown]
  - Laryngeal cyst [Unknown]
  - Bronchomalacia [Unknown]
  - Premature baby [Unknown]
  - Foetal exposure during pregnancy [Unknown]
